FAERS Safety Report 5789385-1 (Version None)
Quarter: 2008Q2

REPORT INFORMATION
  Report Type: 
  Country: None (occurrence: None)
  Receive Date: 20080625
  Receipt Date: 20080625
  Transmission Date: 20081010
  Serious: Yes (Disabling)
  Sender: FDA-Public Use
  Company Number: None

PATIENT
  Sex: Male
  Weight: 95.709 kg

DRUGS (1)
  1. TERBINAFINE APO TEP 250 [Suspect]
     Indication: ONYCHOMYCOSIS
     Dosage: 250MG 1 DAY PM 52 PILLS
     Dates: start: 20080404, end: 20080422

REACTIONS (2)
  - AGEUSIA [None]
  - DRUG INEFFECTIVE [None]
